FAERS Safety Report 8595475-0 (Version None)
Quarter: 2012Q3

REPORT INFORMATION
  Report Type: 
  Country: None (occurrence: None)
  Receive Date: 20120815
  Receipt Date: 20120808
  Transmission Date: 20120928
  Serious: No
  Sender: FDA-Public Use
  Company Number: US-BAYER-2012-080373

PATIENT
  Sex: Female

DRUGS (1)
  1. MIRENA [Suspect]
     Dosage: UNK
     Route: 015
     Dates: start: 20120615, end: 20120615

REACTIONS (3)
  - GENITAL DISCOMFORT [None]
  - PROCEDURAL PAIN [None]
  - DEVICE DIFFICULT TO USE [None]
